FAERS Safety Report 5423096-7 (Version None)
Quarter: 2007Q3

REPORT INFORMATION
  Report Type: 
  Country: None (occurrence: None)
  Receive Date: 20070821
  Receipt Date: 20070807
  Transmission Date: 20080115
  Serious: Yes (Hospitalization)
  Sender: FDA-Public Use
  Company Number: 07GR000906

PATIENT
  Age: 58 Year
  Sex: Female

DRUGS (3)
  1. LITHIUM CARBONATE [Suspect]
     Indication: BIPOLAR DISORDER
     Dosage: 300 MG, TID
  2. AMIODARONE HCL [Concomitant]
  3. PROPAFENONE HCL [Concomitant]

REACTIONS (5)
  - BRUGADA SYNDROME [None]
  - DIVERTICULUM [None]
  - DRUG INTERACTION POTENTIATION [None]
  - ELECTROCARDIOGRAM ABNORMAL [None]
  - THYROID DISORDER [None]
